FAERS Safety Report 23236793 (Version 2)
Quarter: 2023Q4

REPORT INFORMATION
  Report Type: Spontaneous
  Country: US (occurrence: US)
  Receive Date: 20231128
  Receipt Date: 20231227
  Transmission Date: 20240110
  Serious: No
  Sender: FDA-Public Use
  Company Number: US-BRISTOL-MYERS SQUIBB COMPANY-2023-171647

PATIENT
  Age: 51 Year
  Sex: Female

DRUGS (1)
  1. ORENCIA [Suspect]
     Active Substance: ABATACEPT
     Indication: Rheumatoid arthritis
     Route: 058
     Dates: start: 202307

REACTIONS (7)
  - Rash [Unknown]
  - Eczema [Unknown]
  - Lymphadenopathy [Unknown]
  - Trigger points [Unknown]
  - Skin exfoliation [Unknown]
  - Dry skin [Unknown]
  - Injection site pain [Unknown]
